FAERS Safety Report 25177908 (Version 1)
Quarter: 2025Q2

REPORT INFORMATION
  Report Type: Spontaneous
  Country: US (occurrence: US)
  Receive Date: 20250409
  Receipt Date: 20250409
  Transmission Date: 20250717
  Serious: Yes (Death, Life-Threatening, Hospitalization, Other)
  Sender: MYLAN
  Company Number: US-MYLANLABS-2025M1030252

PATIENT
  Age: 83 Year
  Sex: Male

DRUGS (2)
  1. PREDNISONE [Suspect]
     Active Substance: PREDNISONE
     Indication: Rheumatoid arthritis
  2. VORICONAZOLE [Suspect]
     Active Substance: VORICONAZOLE
     Indication: Scedosporium infection

REACTIONS (10)
  - Scedosporium infection [Fatal]
  - Pneumonia necrotising [Unknown]
  - Acute respiratory failure [Unknown]
  - Brain abscess [Unknown]
  - Ulcer [Unknown]
  - Endophthalmitis [Unknown]
  - Sigmoid sinus thrombosis [Unknown]
  - Transverse sinus thrombosis [Unknown]
  - Drug-induced liver injury [Unknown]
  - Neurotoxicity [Unknown]
